FAERS Safety Report 6348501 (Version 1)
Quarter: 2020Q3

REPORT INFORMATION
  Report Type: Spontaneous
  Country: GT (occurrence: GT)
  Receive Date: 20070703
  Receipt Date: 20070703
  Transmission Date: 20201105
  Serious: Yes (Other)
  Sender: FDA-Public Use
  Company Number: GT-ROCHE-488195

PATIENT

DRUGS (1)
  1. IBANDRONIC ACID. [Suspect]
     Active Substance: IBANDRONIC ACID
     Dosage: DOSAGE REGIMEN REPORTED AS 1 TAB/M.
     Route: 048
     Dates: start: 200701

REACTIONS (2)
  - Deep vein thrombosis [Not Recovered/Not Resolved]
  - Pyrexia [Recovered/Resolved]

NARRATIVE: CASE EVENT DATE: 20070201
